FAERS Safety Report 5798458-9 (Version None)
Quarter: 2008Q3

REPORT INFORMATION
  Report Type: 
  Country: None (occurrence: None)
  Receive Date: 20080702
  Receipt Date: 20080623
  Transmission Date: 20090109
  Serious: Yes (Other)
  Sender: FDA-Public Use
  Company Number: PHHY2008JP03587

PATIENT
  Sex: Female
  Weight: 59 kg

DRUGS (2)
  1. LOCHOL [Suspect]
     Indication: HYPERCHOLESTEROLAEMIA
     Dosage: 20 MG, UNK
     Route: 048
     Dates: start: 20080111, end: 20080402
  2. LOCHOL [Suspect]
     Indication: LIPIDS ABNORMAL
     Dosage: 20 MG, UNK
     Route: 048
     Dates: start: 20080509

REACTIONS (6)
  - ASTHMA [None]
  - COUGH [None]
  - ORAL HERPES [None]
  - PHARYNGEAL DISORDER [None]
  - PYREXIA [None]
  - UPPER RESPIRATORY TRACT INFLAMMATION [None]
